FAERS Safety Report 6092435-9 (Version None)
Quarter: 2009Q1

REPORT INFORMATION
  Report Type: 
  Country: None (occurrence: None)
  Receive Date: 20090225
  Receipt Date: 20081210
  Transmission Date: 20090719
  Serious: Yes (Death)
  Sender: FDA-Public Use
  Company Number: IT-PFIZER INC-2008092768

PATIENT

DRUGS (5)
  1. SUNITINIB MALATE [Suspect]
     Indication: RENAL CANCER METASTATIC
     Dosage: 37.5 MG, DAILY
     Route: 048
     Dates: start: 20070820, end: 20081026
  2. LIMPIDEX [Concomitant]
     Route: 048
     Dates: start: 20070530, end: 20071031
  3. EUTIROX [Concomitant]
     Dosage: UNK
     Route: 048
     Dates: start: 20080108, end: 20081031
  4. TRAMADOL HCL [Concomitant]
     Dosage: UNK
     Route: 048
     Dates: start: 20080407, end: 20081031
  5. FOSIPRES [Concomitant]
     Dosage: UNK
     Route: 048
     Dates: start: 20080811, end: 20081031

REACTIONS (1)
  - HAEMOLYSIS [None]
